FAERS Safety Report 17425997 (Version 10)
Quarter: 2022Q3

REPORT INFORMATION
  Report Type: Spontaneous
  Country: US (occurrence: US)
  Receive Date: 20200217
  Receipt Date: 20220811
  Transmission Date: 20221027
  Serious: Yes (Hospitalization)
  Sender: FDA-Public Use
  Company Number: US-PFIZER INC-2020065514

PATIENT
  Age: 61 Year
  Sex: Male
  Weight: 57 kg

DRUGS (4)
  1. RAPAMUNE [Suspect]
     Active Substance: SIROLIMUS
     Indication: Liver transplant
     Dosage: 2 MG, ONCE A DAY (TAKE 1 TABLET (2MG PER DOSE))
     Route: 048
  2. RAPAMUNE [Suspect]
     Active Substance: SIROLIMUS
     Dosage: 1 MG, DAILY
     Route: 048
  3. RAPAMUNE [Suspect]
     Active Substance: SIROLIMUS
     Dosage: 1 MG, 2X/DAY
     Route: 048
  4. RAPAMUNE [Suspect]
     Active Substance: SIROLIMUS
     Dosage: 2 MG, 1X/DAY
     Route: 048

REACTIONS (10)
  - Product dose omission issue [Unknown]
  - Underweight [Unknown]
  - Liver disorder [Unknown]
  - Nephrolithiasis [Unknown]
  - COVID-19 [Unknown]
  - Off label use [Unknown]
  - Nausea [Unknown]
  - Eating disorder [Unknown]
  - Weight decreased [Unknown]
  - Malaise [Unknown]

NARRATIVE: CASE EVENT DATE: 20190101
